FAERS Safety Report 5509731-3 (Version None)
Quarter: 2007Q4

REPORT INFORMATION
  Report Type: 
  Country: None (occurrence: None)
  Receive Date: 20071107
  Receipt Date: 20071107
  Transmission Date: 20080405
  Serious: Yes (Death)
  Sender: FDA-Public Use
  Company Number: None

PATIENT
  Age: 47 Year
  Sex: Male
  Weight: 90.7194 kg

DRUGS (4)
  1. VENOFER [Suspect]
     Indication: ANAEMIA
     Dosage: 01/07/06 100MG ONE IV
     Route: 042
     Dates: start: 20060107
  2. VENOFER [Suspect]
     Indication: RED BLOOD CELL COUNT DECREASED
     Dosage: 01/07/06 100MG ONE IV
     Route: 042
     Dates: start: 20060107
  3. VENOFER [Suspect]
     Indication: ANAEMIA
     Dosage: 01/07/06 100MG ONE IV
     Route: 042
     Dates: start: 20060108
  4. VENOFER [Suspect]
     Indication: RED BLOOD CELL COUNT DECREASED
     Dosage: 01/07/06 100MG ONE IV
     Route: 042
     Dates: start: 20060108

REACTIONS (5)
  - CEREBROVASCULAR ACCIDENT [None]
  - CONVULSION [None]
  - HYPERHIDROSIS [None]
  - INFUSION RELATED REACTION [None]
  - PYREXIA [None]
